FAERS Safety Report 5706221-X (Version None)
Quarter: 2008Q2

REPORT INFORMATION
  Report Type: 
  Country: None (occurrence: None)
  Receive Date: 20080415
  Receipt Date: 20080318
  Transmission Date: 20081010
  Serious: No
  Sender: FDA-Public Use
  Company Number: US-BOEHRINGER INGELHEIM GMBH, GERMANY-2008-BP-04461BP

PATIENT
  Sex: Male

DRUGS (14)
  1. ATROVENT HFA [Suspect]
     Indication: CHRONIC OBSTRUCTIVE PULMONARY DISEASE
  2. ATROVENT HFA [Suspect]
     Indication: EMPHYSEMA
  3. ATROVENT HFA [Suspect]
     Indication: CARDIAC FAILURE CONGESTIVE
  4. ATROVENT HFA [Suspect]
     Indication: BRONCHITIS CHRONIC
  5. SPIRIVA [Suspect]
     Indication: DYSPNOEA
     Dates: start: 20060301
  6. ALBUTEROL SULFATE [Concomitant]
     Indication: DYSPNOEA
  7. SEREVENT [Concomitant]
     Indication: DYSPNOEA
  8. LOPRESSOR [Concomitant]
  9. FUROSEMIDE [Concomitant]
  10. LISINOPRIL [Concomitant]
  11. DOXAZOSIN [Concomitant]
  12. CALCIUM/VITAMIN D [Concomitant]
  13. MUCINEX [Concomitant]
  14. ASPIRIN [Concomitant]

REACTIONS (1)
  - APHONIA [None]
